FAERS Safety Report 4537932-X (Version None)
Quarter: 2004Q4

REPORT INFORMATION
  Report Type: 
  Country: None (occurrence: None)
  Receive Date: 20041224
  Receipt Date: 20041208
  Transmission Date: 20050328
  Serious: Yes (Other)
  Sender: FDA-Public Use
  Company Number: PHBS2004JP16470

PATIENT
  Age: 48 Year
  Sex: Male
  Weight: 61 kg

DRUGS (4)
  1. CARBAMAZEPINE [Suspect]
     Indication: EPILEPSY
     Dosage: 600 MG/DAY
     Route: 048
  2. FENYTOIN [Suspect]
     Indication: EPILEPSY
     Dosage: 300 MG/DAY
     Route: 048
  3. CLOBAZAM [Concomitant]
     Indication: EPILEPSY
     Dosage: 15 MG/DAY
     Route: 048
  4. PHENOBARBITAL [Concomitant]
     Indication: EPILEPSY
     Dosage: 300 MG/DAY
     Route: 048

REACTIONS (8)
  - ATRIOVENTRICULAR BLOCK FIRST DEGREE [None]
  - ATRIOVENTRICULAR BLOCK SECOND DEGREE [None]
  - AUTONOMIC NERVOUS SYSTEM IMBALANCE [None]
  - CONVULSION [None]
  - ELECTROCARDIOGRAM PR PROLONGATION [None]
  - FOOT OPERATION [None]
  - LIMB TRAUMATIC AMPUTATION [None]
  - PAIN [None]
